FAERS Safety Report 20756444 (Version 1)
Quarter: 2022Q2

REPORT INFORMATION
  Report Type: Spontaneous
  Country: US (occurrence: None)
  Receive Date: 20220426
  Receipt Date: 20220426
  Transmission Date: 20220721
  Serious: No
  Sender: FDA-Public Use
  Company Number: None

PATIENT
  Sex: Female

DRUGS (1)
  1. STIVARGA [Suspect]
     Active Substance: REGORAFENIB
     Indication: Brain neoplasm malignant
     Dosage: OTHER FREQUENCY : DAILY 21D ON, 7OFF;?
     Route: 048
     Dates: start: 20220215

REACTIONS (1)
  - Therapy non-responder [None]
